FAERS Safety Report 11321432 (Version 1)
Quarter: 2015Q3

REPORT INFORMATION
  Report Type: Spontaneous
  Country: US (occurrence: US)
  Receive Date: 20150729
  Receipt Date: 20150729
  Transmission Date: 20151125
  Serious: Yes (Disabling, Other)
  Sender: FDA-Public Use
  Company Number: US-SA-2015SA109081

PATIENT
  Age: 49 Year
  Sex: Male

DRUGS (4)
  1. NASACORT ALLERGY 24HR [Suspect]
     Active Substance: TRIAMCINOLONE ACETONIDE
     Indication: RESPIRATORY DISORDER
     Dosage: DOSE: 1 SPRAY IN EACH NOSTRIL?START DATE: LONGER THAN 4-5 WEEK
     Route: 045
  2. NASACORT ALLERGY 24HR [Suspect]
     Active Substance: TRIAMCINOLONE ACETONIDE
     Indication: HYPERSENSITIVITY
     Dosage: DOSE: 1 SPRAY IN EACH NOSTRIL?START DATE: LONGER THAN 4-5 WEEK
     Route: 045
  3. NASACORT ALLERGY 24HR [Suspect]
     Active Substance: TRIAMCINOLONE ACETONIDE
     Indication: RESPIRATORY DISORDER
     Dosage: DOSE: 2 SQUIRTS IN EACH NOSTRIL DAILY?START DATE: FOR THE FIRST WEEK
     Route: 045
  4. NASACORT ALLERGY 24HR [Suspect]
     Active Substance: TRIAMCINOLONE ACETONIDE
     Indication: HYPERSENSITIVITY
     Dosage: DOSE: 2 SQUIRTS IN EACH NOSTRIL DAILY?START DATE: FOR THE FIRST WEEK
     Route: 045

REACTIONS (7)
  - Dyspepsia [Unknown]
  - Gastrointestinal motility disorder [Unknown]
  - Abdominal distension [Unknown]
  - Muscle injury [Unknown]
  - Tendon injury [Unknown]
  - Animal bite [Unknown]
  - Abdominal pain [Unknown]
